FAERS Safety Report 18497990 (Version 2)
Quarter: 2020Q4

REPORT INFORMATION
  Report Type: Spontaneous
  Country: NL (occurrence: NL)
  Receive Date: 20201112
  Receipt Date: 20201125
  Transmission Date: 20210114
  Serious: Yes (Other)
  Sender: FDA-Public Use
  Company Number: NL-SA-2020SA315068

PATIENT

DRUGS (1)
  1. CLOPIDOGREL BISULFATE. [Suspect]
     Active Substance: CLOPIDOGREL BISULFATE
     Indication: CORONARY ARTERY OCCLUSION
     Dosage: 75 MG, QD (1X 1ST)
     Route: 065
     Dates: start: 20190902, end: 20190916

REACTIONS (4)
  - Pustule [Unknown]
  - Loss of consciousness [Unknown]
  - Pruritus [Recovered/Resolved]
  - Shock [Recovered/Resolved]
